FAERS Safety Report 12252228 (Version 1)
Quarter: 2016Q2

REPORT INFORMATION
  Report Type: Spontaneous
  Country: US (occurrence: None)
  Receive Date: 20160408
  Receipt Date: 20160408
  Transmission Date: 20160815
  Serious: Yes (Life-Threatening, Hospitalization, Disabling)
  Sender: FDA-Public Use
  Company Number: None

PATIENT
  Age: 70 Year
  Sex: Male
  Weight: 71.67 kg

DRUGS (2)
  1. LISINOPRIL 10 MG, 10 MG MERCK [Suspect]
     Active Substance: LISINOPRIL
     Indication: HYPERTENSION
     Route: 048
     Dates: start: 20160322, end: 20160323
  2. AMLODIPINE [Concomitant]
     Active Substance: AMLODIPINE BESYLATE

REACTIONS (6)
  - Amnesia [None]
  - Hypersensitivity [None]
  - Brain injury [None]
  - Oropharyngeal pain [None]
  - Dyspnoea [None]
  - Lymphadenopathy [None]

NARRATIVE: CASE EVENT DATE: 20160323
